FAERS Safety Report 15170520 (Version 1)
Quarter: 2018Q3

REPORT INFORMATION
  Report Type: Spontaneous
  Country: PL (occurrence: PL)
  Receive Date: 20180720
  Receipt Date: 20180720
  Transmission Date: 20181010
  Serious: Yes (Death, Life-Threatening, Hospitalization)
  Sender: FDA-Public Use
  Company Number: PL-009507513-1807POL005376

PATIENT
  Age: 65 Year
  Sex: Female
  Weight: 77.4 kg

DRUGS (4)
  1. TEMODAL [Suspect]
     Active Substance: TEMOZOLOMIDE
     Indication: BRAIN NEOPLASM MALIGNANT
     Dosage: DOSE: 75MG/M2
     Route: 048
     Dates: start: 20180409, end: 20180509
  2. DEXAVEN [Concomitant]
     Active Substance: DEXAMETHASONE
     Indication: BRAIN NEOPLASM MALIGNANT
     Dosage: 8 MG, Q12H
     Route: 042
     Dates: start: 20180410, end: 20180525
  3. CIPRINOL [Concomitant]
     Active Substance: CIPROFLOXACIN
     Dosage: 500 MG, Q12H
     Route: 048
     Dates: start: 20180520, end: 20180526
  4. ONDANSETRON [Concomitant]
     Active Substance: ONDANSETRON
     Indication: BRAIN NEOPLASM MALIGNANT
     Dosage: 8 MG, UNK
     Route: 042
     Dates: start: 20180409, end: 20180526

REACTIONS (3)
  - Respiratory failure [Fatal]
  - Neutropenia [Fatal]
  - Thrombocytopenia [Fatal]

NARRATIVE: CASE EVENT DATE: 20180519
